FAERS Safety Report 15490190 (Version 6)
Quarter: 2019Q4

REPORT INFORMATION
  Report Type: Spontaneous
  Country: US (occurrence: US)
  Receive Date: 20181011
  Receipt Date: 20191202
  Transmission Date: 20200122
  Serious: No
  Sender: FDA-Public Use
  Company Number: US-PFIZER INC-2018277896

PATIENT
  Age: 60 Year
  Sex: Female
  Weight: 50 kg

DRUGS (15)
  1. SUPER COLLAGEN [Concomitant]
     Indication: HAIR DISORDER
  2. VITAMIN E [Concomitant]
     Active Substance: .ALPHA.-TOCOPHEROL
     Dosage: UNK
     Dates: start: 2016
  3. EFFEXOR [Concomitant]
     Active Substance: VENLAFAXINE HYDROCHLORIDE
     Dosage: 150 (UNITS UNKNOWN), 2X/DAY
  4. PREMARIN [Suspect]
     Active Substance: ESTROGENS, CONJUGATED
     Indication: MENOPAUSE
     Dosage: 0.625 MG, 1X/DAY
     Route: 048
     Dates: start: 2018
  5. LEVOXYL [Concomitant]
     Active Substance: LEVOTHYROXINE SODIUM
     Indication: GASTROINTESTINAL DISORDER
  6. KLONOPIN [Concomitant]
     Active Substance: CLONAZEPAM
     Indication: SLEEP TERROR
     Dosage: 2 MG, 1X/DAY (AT BEDTIME)
     Dates: start: 1992
  7. SUPER COLLAGEN [Concomitant]
     Indication: ARTHROPATHY
  8. LEVOXYL [Concomitant]
     Active Substance: LEVOTHYROXINE SODIUM
     Indication: DEPRESSION
     Dosage: UNK
  9. L-LYSINE [LYSINE] [Concomitant]
     Dosage: UNK
     Dates: start: 2015
  10. LEVOXYL [Concomitant]
     Active Substance: LEVOTHYROXINE SODIUM
     Indication: THYROID DISORDER
  11. REGLAN [Concomitant]
     Active Substance: METOCLOPRAMIDE HYDROCHLORIDE
     Indication: ABDOMINAL PAIN UPPER
     Dosage: 10 MG, 3X/DAY
  12. KLONOPIN [Concomitant]
     Active Substance: CLONAZEPAM
     Indication: POST-TRAUMATIC STRESS DISORDER
  13. SUPER COLLAGEN [Concomitant]
     Indication: SKIN DISORDER
     Dosage: 3 DF, DAILY
  14. SUPER COLLAGEN [Concomitant]
     Indication: NAIL DISORDER
  15. VITAMIN D3 [Concomitant]
     Active Substance: CHOLECALCIFEROL
     Dosage: UNK
     Dates: start: 2015

REACTIONS (1)
  - Drug ineffective [Unknown]

NARRATIVE: CASE EVENT DATE: 2018
